FAERS Safety Report 19578131 (Version 1)
Quarter: 2021Q3

REPORT INFORMATION
  Report Type: Spontaneous
  Country: CN (occurrence: CN)
  Receive Date: 20210719
  Receipt Date: 20210719
  Transmission Date: 20211014
  Serious: Yes (Hospitalization)
  Sender: FDA-Public Use
  Company Number: CN-BAXTER-2021BAX020960

PATIENT
  Age: 9 Year
  Sex: Male
  Weight: 31 kg

DRUGS (5)
  1. CYTARABINE. [Suspect]
     Active Substance: CYTARABINE
     Indication: T-CELL LYMPHOMA
     Dosage: CAM REGIMEN; DOSE: 75MG/M2/D, D3?6
     Route: 041
     Dates: start: 20210625, end: 20210628
  2. ENDOXAN [Suspect]
     Active Substance: CYCLOPHOSPHAMIDE
     Indication: T-CELL LYMPHOMA
     Dosage: CAM REGIMEN; DOSE: 1000MG/M2/D), DAY 1 [0H, 4H, 8H]
     Route: 041
     Dates: start: 20210623, end: 20210623
  3. UROMITEXAN [Suspect]
     Active Substance: MESNA
     Indication: PROPHYLAXIS
     Dosage: DOSE: 400MG/M2/TIME
     Route: 065
  4. MERCAPTOPURINE. [Suspect]
     Active Substance: MERCAPTOPURINE
     Indication: T-CELL LYMPHOMA
     Dosage: CAM REGIMEN; 60 MG/M2/D
     Route: 065
  5. CYTARABINE. [Suspect]
     Active Substance: CYTARABINE
     Dosage: CAM REGIMEN; DOSE: 75MG/M2/D, D10?13
     Route: 041
     Dates: start: 20210702, end: 20210705

REACTIONS (2)
  - Myelosuppression [Unknown]
  - Pyrexia [Unknown]

NARRATIVE: CASE EVENT DATE: 202107
